FAERS Safety Report 10331253 (Version 2)
Quarter: 2014Q3

REPORT INFORMATION
  Report Type: Other
  Country: US (occurrence: US)
  Receive Date: 20140722
  Receipt Date: 20140722
  Transmission Date: 20150326
  Serious: Yes (Other)
  Sender: FDA-Public Use
  Company Number: US-GSKPPD-2014GSK001316

PATIENT

DRUGS (2)
  1. AVANDIA [Suspect]
     Active Substance: ROSIGLITAZONE MALEATE
     Indication: DIABETES MELLITUS
     Route: 048
     Dates: start: 2004, end: 2007
  2. AVANDIA [Suspect]
     Active Substance: ROSIGLITAZONE MALEATE
     Route: 048
     Dates: start: 2004, end: 2007

REACTIONS (1)
  - Coronary artery disease [None]
